FAERS Safety Report 19494530 (Version 13)
Quarter: 2022Q3

REPORT INFORMATION
  Report Type: Report from Study
  Country: MX (occurrence: MX)
  Receive Date: 20210705
  Receipt Date: 20220929
  Transmission Date: 20221026
  Serious: Yes (Life-Threatening, Hospitalization, Other)
  Sender: FDA-Public Use
  Company Number: MX-NOVARTISPH-NVSC2021MX120113

PATIENT
  Age: 48 Year
  Sex: Male
  Weight: 80 kg

DRUGS (6)
  1. TASIGNA [Suspect]
     Active Substance: NILOTINIB
     Indication: Chronic myeloid leukaemia
     Dosage: 400 MG, Q12H
     Route: 048
     Dates: start: 202010
  2. TASIGNA [Suspect]
     Active Substance: NILOTINIB
     Indication: Myelofibrosis
     Dosage: UNK, BID (IN THE MORNING AND NIGHT)
     Route: 048
  3. TASIGNA [Suspect]
     Active Substance: NILOTINIB
     Dosage: 2 OT, Q12H (IN THE MORNING AND NIGHT)
     Route: 048
  4. TASIGNA [Suspect]
     Active Substance: NILOTINIB
     Dosage: UNK
     Route: 048
  5. TASIGNA [Suspect]
     Active Substance: NILOTINIB
     Dosage: 400 MG, Q12H
     Route: 048
  6. ACARBOSE [Concomitant]
     Active Substance: ACARBOSE
     Indication: Product used for unknown indication
     Dosage: 1 OT, BID (IN THE MORNING AND IN THE AFTERNOON (WITH FOOD))
     Route: 065

REACTIONS (42)
  - Hallucination [Unknown]
  - Abscess [Unknown]
  - Blood glucose increased [Unknown]
  - Blood pressure increased [Unknown]
  - Acidosis [Unknown]
  - Memory impairment [Unknown]
  - Peripheral swelling [Recovering/Resolving]
  - Dysstasia [Unknown]
  - Feeling abnormal [Unknown]
  - Hypoxia [Unknown]
  - Haemorrhage [Unknown]
  - Shock [Unknown]
  - Blood glucose increased [Recovered/Resolved]
  - Ill-defined disorder [Unknown]
  - Decreased immune responsiveness [Unknown]
  - Affective disorder [Recovering/Resolving]
  - Psychiatric symptom [Unknown]
  - Musculoskeletal pain [Unknown]
  - Anxiety [Unknown]
  - Dry mouth [Unknown]
  - Asthenia [Unknown]
  - Abdominal discomfort [Recovering/Resolving]
  - Oropharyngeal discomfort [Unknown]
  - Blood pressure increased [Recovered/Resolved]
  - Movement disorder [Unknown]
  - Blood glucose decreased [Recovering/Resolving]
  - Fatigue [Unknown]
  - Dyspnoea [Not Recovered/Not Resolved]
  - Depression [Unknown]
  - Influenza [Recovering/Resolving]
  - Abscess limb [Unknown]
  - Swelling [Unknown]
  - Constipation [Unknown]
  - Decreased appetite [Unknown]
  - Weight fluctuation [Unknown]
  - Hunger [Unknown]
  - Speech disorder [Unknown]
  - Ligament disorder [Unknown]
  - Cough [Recovering/Resolving]
  - Intentional dose omission [Unknown]
  - Product use in unapproved indication [Unknown]
  - Inappropriate schedule of product administration [Unknown]

NARRATIVE: CASE EVENT DATE: 20210517
